FAERS Safety Report 20893638 (Version 2)
Quarter: 2022Q2

REPORT INFORMATION
  Report Type: Spontaneous
  Country: CO (occurrence: CO)
  Receive Date: 20220531
  Receipt Date: 20220630
  Transmission Date: 20220721
  Serious: Yes (Hospitalization)
  Sender: FDA-Public Use
  Company Number: CO-PFIZER INC-202200759568

PATIENT
  Age: 14 Year
  Sex: Male

DRUGS (1)
  1. GENOTROPIN [Suspect]
     Active Substance: SOMATROPIN
     Dosage: 1.2 MG, UNSPECIFIED FRECUENCY
     Route: 058
     Dates: end: 20220520

REACTIONS (2)
  - Asthmatic crisis [Unknown]
  - Pyrexia [Unknown]

NARRATIVE: CASE EVENT DATE: 20220520
